FAERS Safety Report 4862964-1 (Version None)
Quarter: 2005Q4

REPORT INFORMATION
  Report Type: 
  Country: None (occurrence: None)
  Receive Date: 20051219
  Receipt Date: 20051206
  Transmission Date: 20060501
  Serious: Yes (Hospitalization, Other)
  Sender: FDA-Public Use
  Company Number: 2003183373BR

PATIENT
  Age: 69 Year
  Sex: Female

DRUGS (5)
  1. GENOTROPIN [Suspect]
     Dosage: 5.3 MG (5.3 MG, WEEKLY)
     Dates: start: 20030124, end: 20031001
  2. PROLOPA (BENSARAZIDE HYDROCHLORIDE, LEVODOPA) [Concomitant]
  3. MANTADAN (AMANTADINE HYDROCHLORIDE) [Concomitant]
  4. HYDANTAL (MEPHENYTOIN PHENOBARBITAL) [Concomitant]
  5. LEVOTHYROXINE SODIUM [Concomitant]

REACTIONS (1)
  - BREAST CANCER [None]
